FAERS Safety Report 4958720-6 (Version None)
Quarter: 2006Q1

REPORT INFORMATION
  Report Type: 
  Country: None (occurrence: None)
  Receive Date: 20060330
  Receipt Date: 20051128
  Transmission Date: 20060701
  Serious: Yes (Hospitalization, Other)
  Sender: FDA-Public Use
  Company Number: US-MERCK-0511USA04438

PATIENT
  Age: 70 Year
  Sex: Male
  Weight: 86 kg

DRUGS (14)
  1. VIOXX [Suspect]
     Indication: MONARTHRITIS
     Route: 048
     Dates: start: 20031117, end: 20041116
  2. VIOXX [Suspect]
     Indication: OSTEOARTHRITIS
     Route: 048
     Dates: start: 20031117, end: 20041116
  3. DIOVAN [Concomitant]
     Indication: HYPERTENSION
     Route: 065
     Dates: start: 19970101
  4. INDERAL [Concomitant]
     Indication: HYPERTENSION
     Route: 065
     Dates: start: 19800101
  5. NORVASC [Concomitant]
     Indication: HYPERTENSION
     Route: 065
     Dates: start: 19920101
  6. LASIX [Concomitant]
     Indication: HYPERTENSION
     Route: 065
     Dates: start: 19920101
  7. ASPIRIN [Concomitant]
     Route: 065
  8. POTASSIUM (UNSPECIFIED) [Concomitant]
     Route: 065
  9. ATENOLOL [Concomitant]
     Route: 065
  10. GLUCOSAMINE [Concomitant]
     Route: 065
  11. CHONDROITIN [Concomitant]
     Route: 065
  12. ROBINUL [Concomitant]
     Route: 065
  13. SULINDAC [Concomitant]
     Route: 065
  14. SPIRONOLACTONE [Concomitant]
     Indication: HYPERTENSION
     Route: 065

REACTIONS (4)
  - ANXIETY [None]
  - CEREBROVASCULAR ACCIDENT [None]
  - DYSPEPSIA [None]
  - MYOCARDIAL INFARCTION [None]
